FAERS Safety Report 23103292 (Version 1)
Quarter: 2023Q4

REPORT INFORMATION
  Report Type: Spontaneous
  Country: US (occurrence: None)
  Receive Date: 20231024
  Receipt Date: 20231024
  Transmission Date: 20240110
  Serious: No
  Sender: FDA-Public Use
  Company Number: None

PATIENT
  Age: 49 Year
  Sex: Male
  Weight: 128.25 kg

DRUGS (14)
  1. BENZONATATE [Suspect]
     Active Substance: BENZONATATE
     Indication: Cough
     Dosage: OTHER QUANTITY : 20 CAPSULE(S);?FREQUENCY : 3 TIMES A DAY;?
     Route: 048
     Dates: start: 20231016, end: 20231023
  2. SYMBICORT [Concomitant]
     Active Substance: BUDESONIDE\FORMOTEROL FUMARATE DIHYDRATE
  3. HYDROCHLOROTHIAZIDE\LOSARTAN [Concomitant]
     Active Substance: HYDROCHLOROTHIAZIDE\LOSARTAN
  4. ATORVASTATIN [Concomitant]
     Active Substance: ATORVASTATIN
  5. MONTELUKAST [Concomitant]
     Active Substance: MONTELUKAST SODIUM
  6. Ozdempic [Concomitant]
  7. FISH OIL [Concomitant]
     Active Substance: FISH OIL
  8. FLAXSEED [Concomitant]
     Active Substance: FLAX SEED
  9. VITAMIN D3 [Concomitant]
  10. COENZYME Q10 [Concomitant]
     Active Substance: DIETARY SUPPLEMENT\UBIDECARENONE
  11. Turmeric Curcumin w Bioperine [Concomitant]
  12. PROBIOTICS NOS [Concomitant]
     Active Substance: PROBIOTICS NOS
  13. ONE-A-DAY NOS [Concomitant]
     Active Substance: MINERALS\VITAMINS
  14. RANITIDINE [Concomitant]
     Active Substance: RANITIDINE

REACTIONS (1)
  - Dizziness [None]

NARRATIVE: CASE EVENT DATE: 20231020
